FAERS Safety Report 18164952 (Version 3)
Quarter: 2020Q4

REPORT INFORMATION
  Report Type: Spontaneous
  Country: US (occurrence: US)
  Receive Date: 20200818
  Receipt Date: 20201013
  Transmission Date: 20210113
  Serious: Yes (Other)
  Sender: FDA-Public Use
  Company Number: US-009507513-2008USA008980

PATIENT
  Age: 27 Year
  Sex: Female
  Weight: 69.03 kg

DRUGS (1)
  1. NEXPLANON [Suspect]
     Active Substance: ETONOGESTREL
     Indication: CONTRACEPTION
     Dosage: 1 IMPLANT ROD, LEFT UPPER ARM (NON-DOMINANT), EVERY 3 YEARS
     Route: 059
     Dates: start: 20190604, end: 20200813

REACTIONS (3)
  - General anaesthesia [Recovered/Resolved]
  - Vaginal haemorrhage [Unknown]
  - Device kink [Recovered/Resolved]

NARRATIVE: CASE EVENT DATE: 20200813
